FAERS Safety Report 10729721 (Version 1)
Quarter: 2015Q1

REPORT INFORMATION
  Report Type: Spontaneous
  Country: US (occurrence: None)
  Receive Date: 20150121
  Receipt Date: 20150121
  Transmission Date: 20150721
  Serious: No
  Sender: FDA-Public Use
  Company Number: None

PATIENT
  Age: 37 Year
  Sex: Female

DRUGS (1)
  1. CERDELGA [Suspect]
     Active Substance: ELIGLUSTAT
     Indication: GAUCHER^S DISEASE
     Route: 048
     Dates: start: 20141211

REACTIONS (5)
  - Asthenia [None]
  - Pruritus [None]
  - Oropharyngeal pain [None]
  - Dysphagia [None]
  - Palpitations [None]

NARRATIVE: CASE EVENT DATE: 20150105
